FAERS Safety Report 9224361 (Version 2)
Quarter: 2013Q2

REPORT INFORMATION
  Report Type: Report from Study
  Country: CA (occurrence: CA)
  Receive Date: 20130411
  Receipt Date: 20130515
  Transmission Date: 20140414
  Serious: Yes (Other)
  Sender: FDA-Public Use
  Company Number: PHHY2011CA25129

PATIENT
  Sex: Female

DRUGS (3)
  1. ACLASTA [Suspect]
     Indication: OSTEOPOROSIS
     Dosage: 5 MG / 100ML
     Route: 042
     Dates: start: 20090430
  2. ACLASTA [Suspect]
     Dosage: 5 MG / 100ML
     Route: 042
     Dates: start: 20100408
  3. ACLASTA [Suspect]
     Dosage: 5 MG/100 ML, UNK
     Route: 042
     Dates: start: 20120528

REACTIONS (2)
  - Dementia [Unknown]
  - Drug ineffective [Unknown]
